FAERS Safety Report 10844838 (Version 1)
Quarter: 2015Q1

REPORT INFORMATION
  Report Type: Spontaneous
  Country: US (occurrence: US)
  Receive Date: 20150220
  Receipt Date: 20150220
  Transmission Date: 20150721
  Serious: No
  Sender: FDA-Public Use
  Company Number: US-ELI_LILLY_AND_COMPANY-US201007001647

PATIENT
  Age: 54 Year
  Sex: Male

DRUGS (7)
  1. CIALIS [Suspect]
     Active Substance: TADALAFIL
     Indication: ERECTILE DYSFUNCTION
     Dosage: 10 MG, AS NEEDED
     Route: 065
     Dates: start: 200904
  2. CIALIS [Suspect]
     Active Substance: TADALAFIL
     Dosage: 5 MG, QD
     Route: 065
     Dates: start: 2010
  3. PLAVIX [Concomitant]
     Active Substance: CLOPIDOGREL BISULFATE
  4. RAMIPRIL. [Concomitant]
     Active Substance: RAMIPRIL
  5. ASPIRIN                            /00002701/ [Concomitant]
     Active Substance: ASPIRIN
  6. DOXAZOSIN [Concomitant]
     Active Substance: DOXAZOSIN\DOXAZOSIN MESYLATE
  7. CIALIS [Suspect]
     Active Substance: TADALAFIL
     Indication: BENIGN PROSTATIC HYPERPLASIA
     Dosage: 20 MG, UNK
     Route: 065

REACTIONS (4)
  - Wrong technique in drug usage process [Unknown]
  - Nasal congestion [Recovered/Resolved]
  - Drug administration error [Recovered/Resolved]
  - Erection increased [Recovered/Resolved]
